FAERS Safety Report 24950618 (Version 1)
Quarter: 2025Q1

REPORT INFORMATION
  Report Type: Spontaneous
  Country: BE (occurrence: BE)
  Receive Date: 20250210
  Receipt Date: 20250210
  Transmission Date: 20250409
  Serious: Yes (Death, Hospitalization, Other)
  Sender: BRACCO
  Company Number: None

PATIENT
  Age: 92 Year
  Sex: Female

DRUGS (10)
  1. FLUCLOXACILLIN SODIUM MONOHYDRATE [Suspect]
     Active Substance: FLUCLOXACILLIN SODIUM MONOHYDRATE
     Indication: Bacteraemia
     Dosage: 12 G, QD, 2 G INTRAVENOUSLY 6 TIMES DAILY
     Route: 042
     Dates: start: 20241221, end: 20241224
  2. IOMERON [Suspect]
     Active Substance: IOMEPROL
     Indication: Computerised tomogram
     Route: 042
     Dates: start: 20241220, end: 20241220
  3. AMOXICILLIN\CLAVULANATE POTASSIUM [Concomitant]
     Active Substance: AMOXICILLIN\CLAVULANATE POTASSIUM
  4. D VITAL FORTE [Concomitant]
  5. ACETAMINOPHEN [Concomitant]
     Active Substance: ACETAMINOPHEN
  6. FENTANYL [Concomitant]
     Active Substance: FENTANYL
     Route: 062
  7. HALDOL [Concomitant]
     Active Substance: HALOPERIDOL
  8. LORMETAZEPAM [Concomitant]
     Active Substance: LORMETAZEPAM
  9. OMEPRAZOLE [Concomitant]
     Active Substance: OMEPRAZOLE
  10. OXYCODONE HYDROCHLORIDE [Concomitant]
     Active Substance: OXYCODONE HYDROCHLORIDE

REACTIONS (2)
  - Acute kidney injury [Fatal]
  - Glomerular filtration rate decreased [Fatal]
